FAERS Safety Report 15721491 (Version 1)
Quarter: 2018Q4

REPORT INFORMATION
  Report Type: Report from Study
  Country: None (occurrence: PE)
  Receive Date: 20181214
  Receipt Date: 20181214
  Transmission Date: 20190205
  Serious: Yes (Other)
  Sender: FDA-Public Use
  Company Number: PE-ABBVIE-18K-127-2591439-00

PATIENT
  Age: 60 Year
  Sex: Female
  Weight: 82 kg

DRUGS (2)
  1. PREDNISONE. [Concomitant]
     Active Substance: PREDNISONE
     Indication: PRODUCT USED FOR UNKNOWN INDICATION
  2. HUMIRA [Suspect]
     Active Substance: ADALIMUMAB
     Indication: RHEUMATOID ARTHRITIS
     Route: 058
     Dates: start: 20150210, end: 20181108

REACTIONS (3)
  - Conjunctivitis [Recovering/Resolving]
  - Injury corneal [Recovering/Resolving]
  - Cellulitis orbital [Recovering/Resolving]

NARRATIVE: CASE EVENT DATE: 20181206
